FAERS Safety Report 7377554-9 (Version None)
Quarter: 2011Q1

REPORT INFORMATION
  Report Type: 
  Country: None (occurrence: None)
  Receive Date: 20110317
  Receipt Date: 20110308
  Transmission Date: 20110831
  Serious: Yes (Death)
  Sender: FDA-Public Use
  Company Number: KV200900809

PATIENT
  Age: 52 Year
  Sex: Male
  Weight: 103.4 kg

DRUGS (20)
  1. SPIRONOLACTONE [Concomitant]
  2. COMBIVENT /01033501/ (IPRATROPIUM BROMIDE, SALBUTAMOL) [Concomitant]
  3. CADUET [Concomitant]
  4. FLOMAX /00889901/ (MORNIFLUMATE) [Concomitant]
  5. AVELOX /01453201/ (MOXIFLOXACIN) [Concomitant]
  6. AMLODIPINE BESYLATE [Concomitant]
  7. NITROQUICK (GLYCERYL TRINITRATE) [Concomitant]
  8. GLIPIZIDE [Concomitant]
  9. FUROSEMIDE [Concomitant]
  10. CELEXA [Concomitant]
  11. LISINOPRIL [Concomitant]
  12. ZOLPIDEM [Concomitant]
  13. ISOSORBIDE MONONITRATE [Suspect]
     Indication: BLOOD PRESSURE
     Dosage: 30 MG, QD, ORAL
     Route: 048
     Dates: start: 20070919, end: 20080921
  14. VERAPAMIL [Concomitant]
  15. METOPROLOL TARTRATE [Concomitant]
  16. ASPIRIN [Concomitant]
  17. PLAVIX [Concomitant]
  18. NASACORT [Concomitant]
  19. KLOR-CON [Concomitant]
  20. MUPIROCIN [Concomitant]

REACTIONS (20)
  - DYSPNOEA [None]
  - OEDEMA PERIPHERAL [None]
  - HEAD INJURY [None]
  - CORONARY ARTERY DISEASE [None]
  - ECONOMIC PROBLEM [None]
  - DIABETES MELLITUS [None]
  - INSOMNIA [None]
  - NAUSEA [None]
  - FURUNCLE [None]
  - ADJUSTMENT DISORDER [None]
  - ANHEDONIA [None]
  - ARRHYTHMIA [None]
  - ANXIETY [None]
  - AGITATION [None]
  - ROAD TRAFFIC ACCIDENT [None]
  - CARDIO-RESPIRATORY ARREST [None]
  - MAJOR DEPRESSION [None]
  - IMPAIRED WORK ABILITY [None]
  - DECREASED EYE CONTACT [None]
  - MALAISE [None]
